FAERS Safety Report 6977878-0 (Version None)
Quarter: 2010Q3

REPORT INFORMATION
  Report Type: 
  Country: None (occurrence: None)
  Receive Date: 20100913
  Receipt Date: 20100908
  Transmission Date: 20110219
  Serious: No
  Sender: FDA-Public Use
  Company Number: US-BIOGENIDEC-2010BI031101

PATIENT
  Age: 27 Year
  Sex: Female

DRUGS (2)
  1. AVONEX [Suspect]
     Indication: MULTIPLE SCLEROSIS
     Route: 030
     Dates: start: 20050901, end: 20070101
  2. AVONEX [Suspect]
     Route: 030
     Dates: start: 20090401

REACTIONS (3)
  - DEPRESSION [None]
  - INJECTION SITE PAIN [None]
  - INJECTION SITE SCAR [None]
